FAERS Safety Report 23155977 (Version 1)
Quarter: 2023Q4

REPORT INFORMATION
  Report Type: Spontaneous
  Country: CN (occurrence: CN)
  Receive Date: 20231107
  Receipt Date: 20231107
  Transmission Date: 20240110
  Serious: Yes (Other)
  Sender: FDA-Public Use
  Company Number: CN-PFIZER INC-PV202300180614

PATIENT
  Age: 22 Year
  Sex: Female
  Weight: 60 kg

DRUGS (3)
  1. CARBOPROST TROMETHAMINE [Suspect]
     Active Substance: CARBOPROST TROMETHAMINE
     Indication: Uterine hypotonus
     Dosage: 250 UG, 1X/DAY
     Dates: start: 20231031, end: 20231031
  2. SODIUM CHLORIDE [Concomitant]
     Active Substance: SODIUM CHLORIDE
     Indication: Uterine contractions abnormal
     Dosage: 500 ML, 1X/DAY
     Route: 041
     Dates: start: 20231031, end: 20231031
  3. OXYTOCIN [Concomitant]
     Active Substance: OXYTOCIN
     Indication: Uterine contractions abnormal
     Dosage: 10 IU, 1X/DAY
     Route: 041
     Dates: start: 20231031, end: 20231031

REACTIONS (5)
  - Dyspnoea [Recovered/Resolved]
  - Dizziness [Recovered/Resolved]
  - Chest discomfort [Recovered/Resolved]
  - Palpitations [Recovered/Resolved]
  - Discomfort [Recovered/Resolved]

NARRATIVE: CASE EVENT DATE: 20231031
